FAERS Safety Report 5285738-9 (Version None)
Quarter: 2007Q1

REPORT INFORMATION
  Report Type: 
  Country: None (occurrence: None)
  Receive Date: 20070130
  Receipt Date: 20060602
  Transmission Date: 20070707
  Serious: Yes (Other)
  Sender: FDA-Public Use
  Company Number: 2006RL000215

PATIENT
  Age: 77 Year
  Sex: Male
  Weight: 68.0396 kg

DRUGS (9)
  1. RYTHMOL [Suspect]
     Indication: TACHYARRHYTHMIA
     Dosage: PO
     Route: 048
     Dates: start: 20060401
  2. REMICADE [Concomitant]
  3. MTX /00113801/ [Concomitant]
  4. FOSAMAX [Concomitant]
  5. CALCIUM W/VITAMIN D NOS [Concomitant]
  6. SYNTHROID [Concomitant]
  7. ASPIRIN [Concomitant]
  8. TIAZAC [Concomitant]
  9. FOLATE SODIUM [Concomitant]

REACTIONS (1)
  - SYSTEMIC LUPUS ERYTHEMATOSUS [None]
